FAERS Safety Report 12281466 (Version 1)
Quarter: 2016Q2

REPORT INFORMATION
  Report Type: Spontaneous
  Country: IT (occurrence: IT)
  Receive Date: 20160419
  Receipt Date: 20160419
  Transmission Date: 20160815
  Serious: Yes (Hospitalization)
  Sender: FDA-Public Use
  Company Number: IT-SA-2016SA073460

PATIENT
  Age: 86 Year
  Sex: Female

DRUGS (8)
  1. KEPPRA [Concomitant]
     Active Substance: LEVETIRACETAM
     Route: 048
  2. SIVASTIN [Concomitant]
     Active Substance: SIMVASTATIN
  3. DEPAKIN CHRONO [Concomitant]
     Active Substance: VALPROIC ACID
  4. PLAVIX [Suspect]
     Active Substance: CLOPIDOGREL BISULFATE
     Indication: THROMBOSIS PROPHYLAXIS
     Route: 048
     Dates: start: 20150101, end: 20160112
  5. LASIX [Concomitant]
     Active Substance: FUROSEMIDE
  6. CARDICOR [Concomitant]
     Active Substance: BISOPROLOL
  7. MIFLONIDE [Concomitant]
     Active Substance: BUDESONIDE
  8. TAREG [Concomitant]
     Active Substance: VALSARTAN

REACTIONS (4)
  - Cerebral artery occlusion [Unknown]
  - Cerebrovascular accident [Unknown]
  - Aphasia [Unknown]
  - Asthenia [Unknown]

NARRATIVE: CASE EVENT DATE: 20160112
